FAERS Safety Report 19504154 (Version 1)
Quarter: 2021Q3

REPORT INFORMATION
  Report Type: Report from Study
  Country: JP (occurrence: JP)
  Receive Date: 20210707
  Receipt Date: 20210707
  Transmission Date: 20211014
  Serious: Yes (Hospitalization)
  Sender: FDA-Public Use
  Company Number: JP-PFIZER INC-2019092751

PATIENT
  Age: 83 Year
  Sex: Female
  Weight: 51.7 kg

DRUGS (20)
  1. OLMETEC [Concomitant]
     Active Substance: OLMESARTAN MEDOXOMIL
     Dosage: UNK
  2. ARTIST [Concomitant]
     Active Substance: CARVEDILOL
     Dosage: UNK
     Dates: start: 20171218
  3. PURSENNID [SENNOSIDE A+B CALCIUM] [Concomitant]
     Active Substance: SENNOSIDES A AND B
     Dosage: UNK
  4. ATORVASTATIN [Concomitant]
     Active Substance: ATORVASTATIN
     Dosage: UNK
  5. PLAVIX [Concomitant]
     Active Substance: CLOPIDOGREL BISULFATE
     Dosage: UNK
  6. FUROSEMIDE. [Concomitant]
     Active Substance: FUROSEMIDE
     Dosage: UNK
  7. BAYASPIRIN [Concomitant]
     Active Substance: ASPIRIN
     Dosage: UNK
     Dates: start: 20171218
  8. LOXONIN [Concomitant]
     Active Substance: LOXOPROFEN SODIUM
     Dosage: TAPE (INCLUDING POULTICE)
  9. ALDACTONE A [Suspect]
     Active Substance: SPIRONOLACTONE
     Indication: HYPERTENSION
     Dosage: 50 MG, QD (AFTER BREAKFAST)
     Route: 048
  10. LANTUS [Concomitant]
     Active Substance: INSULIN GLARGINE
     Dosage: UNK
  11. ADALAT [Concomitant]
     Active Substance: NIFEDIPINE
     Dosage: UNK
  12. BLINDED THERAPY [Suspect]
     Active Substance: INVESTIGATIONAL PRODUCT
     Indication: CARDIAC FAILURE CHRONIC
     Dosage: UNK
     Route: 048
     Dates: start: 20150812
  13. ETIZOLAM [Concomitant]
     Active Substance: ETIZOLAM
     Dosage: UNK
  14. KETOCONAZOLE. [Concomitant]
     Active Substance: KETOCONAZOLE
     Dosage: TAPE (INCLUDING POULTICE)
  15. JANUVIA [Concomitant]
     Active Substance: SITAGLIPTIN PHOSPHATE
     Dosage: UNK
  16. METHYCOBAL [Concomitant]
     Active Substance: METHYLCOBALAMIN
     Dosage: UNK
  17. LANSOPRAZOLE. [Concomitant]
     Active Substance: LANSOPRAZOLE
     Dosage: UNK
  18. ZETIA [Suspect]
     Active Substance: EZETIMIBE
     Indication: DYSLIPIDAEMIA
     Dosage: 10 MG, QD (AFTER BREAKFAST)
     Route: 048
  19. SACUBITRIL/VALSARTAN [Suspect]
     Active Substance: SACUBITRIL\VALSARTAN
     Indication: CARDIAC FAILURE
     Dosage: 200 MG, BID
     Route: 048
     Dates: start: 20150730
  20. GLIMEPIRIDE. [Concomitant]
     Active Substance: GLIMEPIRIDE
     Dosage: UNK
     Dates: start: 20170104

REACTIONS (2)
  - Cataract [Recovered/Resolved]
  - Cataract [Recovered/Resolved]

NARRATIVE: CASE EVENT DATE: 20171019
